FAERS Safety Report 23718821 (Version 1)
Quarter: 2024Q2

REPORT INFORMATION
  Report Type: Spontaneous
  Country: US (occurrence: US)
  Receive Date: 20240408
  Receipt Date: 20240408
  Transmission Date: 20240716
  Serious: Yes (Hospitalization, Other)
  Sender: FDA-Public Use
  Company Number: US-FreseniusKabi-FK202405753

PATIENT
  Age: 28 Year
  Sex: Female

DRUGS (4)
  1. PROGESTERONE [Suspect]
     Active Substance: PROGESTERONE
     Indication: Ovulation induction
     Route: 030
  2. FOLLISTIM [Suspect]
     Active Substance: FOLLITROPIN
     Indication: Ovulation induction
     Route: 030
  3. MENOPUR [Suspect]
     Active Substance: FOLLITROPIN\LUTEINIZING HORMONE
     Indication: Ovulation induction
     Route: 030
  4. CHORIOGONADOTROPIN ALFA [Suspect]
     Active Substance: CHORIOGONADOTROPIN ALFA
     Indication: Ovulation induction
     Route: 030

REACTIONS (1)
  - Ovarian hyperstimulation syndrome [Recovered/Resolved]
